FAERS Safety Report 6495267-2 (Version None)
Quarter: 2009Q4

REPORT INFORMATION
  Report Type: 
  Country: None (occurrence: None)
  Receive Date: 20091214
  Receipt Date: 20091214
  Transmission Date: 20100525
  Serious: Yes (Other)
  Sender: FDA-Public Use
  Company Number: FR-PFIZER INC-2009271476

PATIENT
  Age: 80 Year
  Sex: Male

DRUGS (4)
  1. LYRICA [Suspect]
     Indication: DIABETIC NEUROPATHY
     Dosage: 50 MG, 3X/DAY
  2. LYRICA [Suspect]
     Dosage: 25 MG, 3X/DAY
  3. AMIODARONE [Concomitant]
     Indication: ARRHYTHMIA
     Dosage: UNK
  4. PLAVIX [Concomitant]
     Dosage: UNK

REACTIONS (3)
  - ATRIOVENTRICULAR BLOCK FIRST DEGREE [None]
  - BRADYCARDIA [None]
  - MALAISE [None]
